FAERS Safety Report 8098183-8 (Version None)
Quarter: 2012Q1

REPORT INFORMATION
  Report Type: 
  Country: None (occurrence: None)
  Receive Date: 20120128
  Receipt Date: 20110809
  Transmission Date: 20120608
  Serious: No
  Sender: FDA-Public Use
  Company Number: US-ABBOTT-11P-163-0845093-00

PATIENT
  Age: 48 Year
  Sex: Female

DRUGS (12)
  1. FLAGYL [Concomitant]
     Indication: INFECTION
  2. HUMIRA [Suspect]
     Indication: CROHN'S DISEASE
     Dosage: (80 MG, SECONDARY LOADING DOSE)
     Dates: start: 20110711
  3. METHADONE HCL [Concomitant]
     Indication: INTERVERTEBRAL DISC DEGENERATION
  4. DILAUDID [Concomitant]
     Indication: BREAKTHROUGH PAIN
  5. METHADONE HCL [Concomitant]
     Indication: LUMBARISATION
     Dosage: 60MG IN AM + 50 MG IN PM
  6. ACIPHEX [Concomitant]
     Indication: GASTROOESOPHAGEAL REFLUX DISEASE
  7. PLAQUENIL [Concomitant]
     Indication: ARTHRALGIA
     Dosage: AT NIGHT
  8. ACIPHEX [Concomitant]
  9. ASACOL [Concomitant]
     Indication: CROHN'S DISEASE
  10. CIPROFLOXACIN [Concomitant]
     Indication: INFECTION
  11. METHADONE HCL [Concomitant]
     Indication: ARTHRALGIA
  12. MOBIC [Concomitant]
     Indication: ARTHRITIS

REACTIONS (1)
  - INJECTION SITE PAIN [None]
